FAERS Safety Report 8790004 (Version 1)
Quarter: 2012Q4

REPORT INFORMATION
  Report Type: 
  Country: US (occurrence: US)
  Receive Date: 20120917
  Receipt Date: 20120917
  Transmission Date: 20130627
  Serious: Yes (Other)
  Sender: FDA-Public Use
  Company Number: US-ASTRAZENECA-2012SE70430

PATIENT
  Age: 69 Year
  Sex: Female

DRUGS (11)
  1. ATENOLOL [Suspect]
     Route: 048
  2. NEXIUM [Suspect]
     Indication: GASTROOESOPHAGEAL REFLUX DISEASE
     Route: 048
  3. NEXIUM [Suspect]
     Indication: DYSPHAGIA
     Route: 048
  4. NEXIUM [Suspect]
     Indication: GASTROOESOPHAGEAL REFLUX DISEASE
     Route: 048
  5. NEXIUM [Suspect]
     Indication: DYSPHAGIA
     Route: 048
  6. CRESTOR [Suspect]
     Route: 048
  7. ASPIRIN [Concomitant]
  8. ACIPHEX [Concomitant]
  9. CALTRATE [Concomitant]
  10. METFORMIN [Concomitant]
  11. PROTONIX [Concomitant]

REACTIONS (3)
  - Nerve injury [Unknown]
  - Schwannoma [Unknown]
  - Speech disorder [Unknown]
